FAERS Safety Report 6583478-7 (Version None)
Quarter: 2010Q1

REPORT INFORMATION
  Report Type: 
  Country: None (occurrence: None)
  Receive Date: 20100216
  Receipt Date: 20100202
  Transmission Date: 20100710
  Serious: Yes (Hospitalization)
  Sender: FDA-Public Use
  Company Number: DE-MYLANLABS-2009S1018244

PATIENT
  Age: 85 Year
  Sex: Male
  Weight: 71 kg

DRUGS (10)
  1. ALLOPURINOL [Suspect]
     Indication: GOUT
     Route: 048
     Dates: start: 20080701, end: 20080809
  2. FALITHROM [Interacting]
     Indication: THROMBOSIS PROPHYLAXIS
     Route: 048
     Dates: start: 20080101, end: 20080809
  3. ACETYLSALICYLIC ACID [Interacting]
     Indication: ISCHAEMIC HEART DISEASE PROPHYLAXIS
     Route: 048
     Dates: start: 20080301, end: 20080809
  4. ALDACTONE [Interacting]
     Indication: CARDIAC FAILURE
     Route: 048
     Dates: start: 20080701, end: 20080809
  5. FUROGAMMA [Concomitant]
     Indication: CARDIAC FAILURE
     Route: 048
     Dates: start: 20080301, end: 20080809
  6. CONCOR [Concomitant]
     Indication: CARDIAC FAILURE
     Route: 048
     Dates: start: 20040101
  7. RAMIPRIL [Concomitant]
     Indication: CARDIAC FAILURE
     Route: 048
     Dates: start: 20080101, end: 20080809
  8. DIGITOXIN INJ [Concomitant]
     Indication: CARDIAC FAILURE
     Route: 048
     Dates: start: 20080101
  9. PANTOZOL [Concomitant]
     Indication: PROPHYLAXIS AGAINST GASTROINTESTINAL ULCER
     Route: 048
     Dates: start: 20080701
  10. TORSEMIDE [Concomitant]
     Indication: RENAL FAILURE
     Route: 048
     Dates: start: 20080101

REACTIONS (2)
  - DRUG INTERACTION [None]
  - RECTAL ULCER HAEMORRHAGE [None]
